FAERS Safety Report 4755283-5 (Version None)
Quarter: 2005Q3

REPORT INFORMATION
  Report Type: 
  Country: None (occurrence: None)
  Receive Date: 20050829
  Receipt Date: 20050427
  Transmission Date: 20060218
  Serious: Yes (Hospitalization)
  Sender: FDA-Public Use
  Company Number: US-MERCK-0505USA00275

PATIENT
  Age: 43 Year
  Sex: Male
  Weight: 118 kg

DRUGS (12)
  1. VIOXX [Suspect]
     Indication: ARTHRITIS
     Route: 048
     Dates: start: 20030101, end: 20040901
  2. EFFEXOR [Concomitant]
     Indication: DEPRESSION
     Route: 065
     Dates: start: 20020101
  3. RISPERDAL [Concomitant]
     Indication: SCHIZOAFFECTIVE DISORDER
     Route: 065
     Dates: start: 20020101
  4. GLUCOPHAGE [Concomitant]
     Indication: DIABETES MELLITUS
     Route: 065
  5. GLIPIZIDE [Concomitant]
     Indication: DIABETES MELLITUS
     Route: 065
  6. PREVACID [Concomitant]
     Indication: GASTROOESOPHAGEAL REFLUX DISEASE
     Route: 065
  7. VASOTEC RPD [Concomitant]
     Indication: HYPERTENSION
     Route: 048
  8. TOPROL-XL [Concomitant]
     Indication: HYPERTENSION
     Route: 065
  9. ZYRTEC [Concomitant]
     Indication: HYPERSENSITIVITY
     Route: 065
  10. GABAPENTIN [Concomitant]
     Indication: DIABETES MELLITUS
     Route: 065
  11. PAXIL [Concomitant]
     Indication: VISUAL DISTURBANCE
     Route: 065
  12. MONOPRIL [Concomitant]
     Route: 065

REACTIONS (10)
  - ANXIETY [None]
  - ASTHENIA [None]
  - CEREBROVASCULAR ACCIDENT [None]
  - CHEST PAIN [None]
  - CONDITION AGGRAVATED [None]
  - DEPRESSION [None]
  - DYSPNOEA [None]
  - HYPERTENSION [None]
  - HYPOAESTHESIA [None]
  - PAIN IN EXTREMITY [None]
